FAERS Safety Report 16538285 (Version 1)
Quarter: 2019Q3

REPORT INFORMATION
  Report Type: Spontaneous
  Country: JP (occurrence: JP)
  Receive Date: 20190708
  Receipt Date: 20190708
  Transmission Date: 20191004
  Serious: Yes (Other)
  Sender: FDA-Public Use
  Company Number: JP-009507513-1907JPN000242J

PATIENT
  Age: 70 Year
  Sex: Female

DRUGS (1)
  1. ATOZET COMBINATION TABLETS LD [Suspect]
     Active Substance: ATORVASTATIN CALCIUM\EZETIMIBE
     Indication: HYPERCHOLESTEROLAEMIA
     Dosage: 1 DOSAGE FORM, QD
     Route: 048
     Dates: start: 20190520, end: 20190530

REACTIONS (1)
  - Glossodynia [Recovered/Resolved]

NARRATIVE: CASE EVENT DATE: 20190520
